FAERS Safety Report 18066183 (Version 1)
Quarter: 2020Q3

REPORT INFORMATION
  Report Type: Spontaneous
  Country: DE (occurrence: DE)
  Receive Date: 20200724
  Receipt Date: 20200724
  Transmission Date: 20201103
  Serious: Yes (Other)
  Sender: FDA-Public Use
  Company Number: DE-SA-2020SA185203

PATIENT

DRUGS (4)
  1. CYCLOSPORINE. [Concomitant]
     Active Substance: CYCLOSPORINE
     Dosage: TAPERED DOWN
  2. DUPILUMAB [Suspect]
     Active Substance: DUPILUMAB
     Dosage: 300 MG; INJECTION, DAY 12
     Route: 058
  3. DUPILUMAB [Suspect]
     Active Substance: DUPILUMAB
     Indication: DERMATITIS ATOPIC
     Dosage: 300 MGX2
     Route: 058
  4. CYCLOSPORINE. [Concomitant]
     Active Substance: CYCLOSPORINE
     Indication: DERMATITIS ATOPIC

REACTIONS (8)
  - Lymphangitis [Unknown]
  - Injection site erythema [Unknown]
  - Pyrexia [Unknown]
  - Injection site infection [Unknown]
  - Inappropriate schedule of product administration [Unknown]
  - Chills [Unknown]
  - Serum sickness-like reaction [Unknown]
  - Arthralgia [Unknown]
